FAERS Safety Report 9845054 (Version 1)
Quarter: 2014Q1

REPORT INFORMATION
  Report Type: Spontaneous
  Country: US (occurrence: None)
  Receive Date: 20140122
  Receipt Date: 20140122
  Transmission Date: 20141002
  Serious: Yes (Other)
  Sender: FDA-Public Use
  Company Number: AUR-APL-2014-00296

PATIENT
  Age: 75 Year
  Sex: Female
  Weight: 74.83 kg

DRUGS (4)
  1. IRBESARTAN [Suspect]
     Indication: HYPERTENSION
  2. LOSARTAN [Suspect]
     Indication: HYPERTENSION
  3. NORVASC [Suspect]
     Indication: HYPERTENSION
     Dosage: 20 MG, 1 D, ORAL
     Route: 048
  4. AVAPRO [Suspect]
     Indication: HYPERTENSION
     Dosage: 75 MG, 1 D, ORAL
     Route: 048

REACTIONS (1)
  - Blindness [None]
